FAERS Safety Report 7047869-2 (Version None)
Quarter: 2010Q4

REPORT INFORMATION
  Report Type: 
  Country: None (occurrence: None)
  Receive Date: 20101015
  Receipt Date: 20101007
  Transmission Date: 20110411
  Serious: Yes (Other)
  Sender: FDA-Public Use
  Company Number: NO-TEVA-251076ISR

PATIENT
  Sex: Male

DRUGS (2)
  1. METHOTREXATE [Suspect]
     Dosage: UNKNOWN
     Dates: end: 20100701
  2. ETANERCEPT [Suspect]
     Dosage: UNKNOWN
     Dates: end: 20100701

REACTIONS (1)
  - NEOPLASM MALIGNANT [None]
